FAERS Safety Report 6226702-2 (Version None)
Quarter: 2009Q2

REPORT INFORMATION
  Report Type: 
  Country: None (occurrence: None)
  Receive Date: 20090610
  Receipt Date: 20090608
  Transmission Date: 20091009
  Serious: Yes (Hospitalization)
  Sender: FDA-Public Use
  Company Number: DE-WYE-G03808009

PATIENT

DRUGS (2)
  1. VENLAFAXINE HCL [Suspect]
     Dosage: 37.5 MG 1X PER 1 DAY; 75 MG 1 X PER 1 DAY
     Route: 048
     Dates: end: 20090101
  2. VENLAFAXINE HCL [Suspect]
     Dosage: 37.5 MG 1X PER 1 DAY; 75 MG 1 X PER 1 DAY
     Route: 048
     Dates: start: 20090101

REACTIONS (3)
  - BLOOD CREATINE PHOSPHOKINASE INCREASED [None]
  - GAMMOPATHY [None]
  - RHABDOMYOLYSIS [None]
